FAERS Safety Report 16766748 (Version 3)
Quarter: 2019Q4

REPORT INFORMATION
  Report Type: Spontaneous
  Country: US (occurrence: US)
  Receive Date: 20190903
  Receipt Date: 20191122
  Transmission Date: 20200122
  Serious: No
  Sender: FDA-Public Use
  Company Number: US-GLAXOSMITHKLINE-US2019157537

PATIENT
  Sex: Female

DRUGS (1)
  1. TRELEGY ELLIPTA [Suspect]
     Active Substance: FLUTICASONE FUROATE\UMECLIDINIUM BROMIDE\VILANTEROL TRIFENATATE
     Indication: PRODUCT USED FOR UNKNOWN INDICATION
     Dosage: UNK, 100/62.5./25 MCG
     Route: 055
     Dates: start: 201907

REACTIONS (4)
  - Choking sensation [Unknown]
  - Product dose omission [Unknown]
  - Product complaint [Unknown]
  - Product residue present [Unknown]

NARRATIVE: CASE EVENT DATE: 2019
